FAERS Safety Report 10203764 (Version 3)
Quarter: 2017Q4

REPORT INFORMATION
  Report Type: Report from Study
  Country: JP (occurrence: JP)
  Receive Date: 20140529
  Receipt Date: 20171009
  Transmission Date: 20180320
  Serious: Yes (Other)
  Sender: FDA-Public Use
  Company Number: JP-AMGEN-JPNCT2014029301

PATIENT
  Age: 92 Year
  Sex: Female
  Weight: 39 kg

DRUGS (16)
  1. ROMIPLOSTIM [Suspect]
     Active Substance: ROMIPLOSTIM
     Dosage: 1 MUG/KG, QD
     Route: 058
     Dates: start: 20120505
  2. LUPRAC [Concomitant]
     Active Substance: TORSEMIDE
     Indication: PROPHYLAXIS
     Dosage: UNK
     Route: 048
  3. ACTONEL [Concomitant]
     Active Substance: RISEDRONATE SODIUM
     Indication: PROPHYLAXIS
     Dosage: UNK
     Route: 048
  4. ROMIPLOSTIM [Suspect]
     Active Substance: ROMIPLOSTIM
     Indication: IMMUNE THROMBOCYTOPENIC PURPURA
     Dosage: 1 MUG/KG, QD
     Route: 058
     Dates: start: 20120414
  5. ROMIPLOSTIM [Suspect]
     Active Substance: ROMIPLOSTIM
     Dosage: 2 MUG/KG, QWK
     Route: 058
     Dates: start: 20120421
  6. REVOLADE [Concomitant]
     Active Substance: ELTROMBOPAG
     Indication: IMMUNE THROMBOCYTOPENIC PURPURA
     Dosage: UNK
     Route: 048
     Dates: start: 20120512
  7. ALFAROL [Concomitant]
     Active Substance: ALFACALCIDOL
     Indication: PROPHYLAXIS
     Dosage: UNK
     Route: 048
  8. BAYASPIRIN [Concomitant]
     Active Substance: ASPIRIN
     Indication: PROPHYLAXIS
     Dosage: UNK
     Route: 048
  9. FLUCONAZON [Concomitant]
     Indication: PROPHYLAXIS
     Dosage: UNK
     Route: 065
  10. PREDONINE [Concomitant]
     Active Substance: PREDNISOLONE
     Indication: IMMUNE THROMBOCYTOPENIC PURPURA
     Dosage: 30 MG, UNK
     Route: 048
     Dates: start: 20120409
  11. TAKEPRON [Concomitant]
     Active Substance: LANSOPRAZOLE
     Indication: IMMUNE THROMBOCYTOPENIC PURPURA
     Dosage: 60 MG, UNK
     Route: 048
     Dates: start: 20120412, end: 20120418
  12. AMOLIN [Concomitant]
     Active Substance: AMOXICILLIN
     Indication: IMMUNE THROMBOCYTOPENIC PURPURA
     Dosage: 1500 MG, UNK
     Route: 048
     Dates: start: 20120412, end: 20120418
  13. CLARITH [Concomitant]
     Active Substance: CLARITHROMYCIN
     Indication: IMMUNE THROMBOCYTOPENIC PURPURA
     Dosage: 400 MG, UNK
     Route: 048
     Dates: start: 20120412, end: 20120418
  14. PARIET [Concomitant]
     Active Substance: RABEPRAZOLE SODIUM
     Indication: PROPHYLAXIS
     Dosage: UNK
     Route: 048
  15. MUCOSTA [Concomitant]
     Active Substance: REBAMIPIDE
     Indication: PROPHYLAXIS
     Dosage: UNK
     Route: 065
  16. BAKTAR [Concomitant]
     Active Substance: SULFAMETHOXAZOLE\TRIMETHOPRIM
     Indication: PROPHYLAXIS
     Dosage: UNK
     Route: 048

REACTIONS (3)
  - Neutrophil count increased [Recovered/Resolved]
  - Deep vein thrombosis [Recovering/Resolving]
  - Infection [Recovered/Resolved]

NARRATIVE: CASE EVENT DATE: 20120503
